FAERS Safety Report 8349495-1 (Version None)
Quarter: 2012Q2

REPORT INFORMATION
  Report Type: 
  Country: None (occurrence: None)
  Receive Date: 20120510
  Receipt Date: 20120508
  Transmission Date: 20120825
  Serious: Yes (Life-Threatening, Hospitalization, Other)
  Sender: FDA-Public Use
  Company Number: UY-BAYER-2012-008815

PATIENT
  Age: 48 Year
  Sex: Male

DRUGS (1)
  1. NEXAVAR [Suspect]
     Dosage: 400 MG, BID
     Route: 048
     Dates: start: 20110119, end: 20120121

REACTIONS (4)
  - ATRIAL FIBRILLATION [None]
  - PULMONARY OEDEMA [None]
  - DYSPNOEA [None]
  - LEFT VENTRICULAR FAILURE [None]
